FAERS Safety Report 8240037-8 (Version None)
Quarter: 2012Q1

REPORT INFORMATION
  Report Type: 
  Country: None (occurrence: None)
  Receive Date: 20120328
  Receipt Date: 20120316
  Transmission Date: 20120608
  Serious: Yes (Other)
  Sender: FDA-Public Use
  Company Number: US-SANOFI-AVENTIS-2012SA019148

PATIENT
  Age: 63 Year
  Sex: Female

DRUGS (6)
  1. ELOXATIN [Suspect]
     Indication: COLON CANCER
  2. LEUCOVORIN CALCIUM [Suspect]
     Dates: start: 20091201, end: 20091201
  3. FLUOROURACIL [Suspect]
     Dates: start: 20091201, end: 20091201
  4. LEUCOVORIN CALCIUM [Suspect]
     Indication: COLON CANCER
  5. FLUOROURACIL [Suspect]
     Indication: COLON CANCER
  6. ELOXATIN [Suspect]
     Dates: start: 20091201, end: 20091201

REACTIONS (3)
  - NEUROLOGICAL SYMPTOM [None]
  - HYPERSENSITIVITY [None]
  - DISEASE PROGRESSION [None]
